FAERS Safety Report 18808967 (Version 1)
Quarter: 2021Q1

REPORT INFORMATION
  Report Type: Spontaneous
  Country: CN (occurrence: CN)
  Receive Date: 20210129
  Receipt Date: 20210129
  Transmission Date: 20210419
  Serious: Yes (Hospitalization, Other)
  Sender: FDA-Public Use
  Company Number: CN-PFIZER INC-2021064546

PATIENT
  Age: 51 Year
  Sex: Female
  Weight: 60 kg

DRUGS (6)
  1. EPIRUBICIN HYDROCHLORIDE. [Suspect]
     Active Substance: EPIRUBICIN HYDROCHLORIDE
     Indication: CHEMOTHERAPY
     Dosage: 40 MG, 1X/DAY
     Route: 041
     Dates: start: 20201212, end: 20201213
  2. CYTARABINE HYDROCHLORIDE [Suspect]
     Active Substance: CYTARABINE HYDROCHLORIDE
     Indication: CHEMOTHERAPY
     Dosage: 30 MG, 1X/DAY
     Route: 037
     Dates: start: 20201211, end: 20201211
  3. METHOTREXATE. [Suspect]
     Active Substance: METHOTREXATE
     Indication: CHEMOTHERAPY
     Dosage: 15 MG, 1X/DAY
     Route: 037
     Dates: start: 20201210, end: 20201210
  4. METHOTREXATE. [Suspect]
     Active Substance: METHOTREXATE
     Dosage: 1.5 G, 1X/DAY
     Route: 041
     Dates: start: 20201214, end: 20201214
  5. ENDOXAN [CYCLOPHOSPHAMIDE] [Suspect]
     Active Substance: CYCLOPHOSPHAMIDE
     Indication: CHEMOTHERAPY
     Dosage: 300 MG, 1X/DAY
     Route: 041
     Dates: start: 20201210, end: 20201213
  6. VINCRISTINE SULFATE. [Suspect]
     Active Substance: VINCRISTINE SULFATE
     Indication: CHEMOTHERAPY
     Dosage: 2 MG, 1X/DAY
     Route: 042
     Dates: start: 20201210, end: 20201210

REACTIONS (1)
  - Myelosuppression [Recovering/Resolving]

NARRATIVE: CASE EVENT DATE: 20201221
